FAERS Safety Report 9542539 (Version 2)
Quarter: 2014Q1

REPORT INFORMATION
  Report Type: Report from Study
  Country: US (occurrence: US)
  Receive Date: 20130923
  Receipt Date: 20140224
  Transmission Date: 20141002
  Serious: Yes (Other)
  Sender: FDA-Public Use
  Company Number: US-SANOFI-AVENTIS-2013SA091475

PATIENT
  Sex: Female

DRUGS (1)
  1. AUBAGIO [Suspect]
     Route: 065
     Dates: start: 20130613

REACTIONS (5)
  - Cholecystectomy [Unknown]
  - Trigeminal neuralgia [Unknown]
  - Diarrhoea [Unknown]
  - Weight decreased [Unknown]
  - Pancreatitis [Unknown]
